FAERS Safety Report 11623535 (Version 1)
Quarter: 2015Q4

REPORT INFORMATION
  Report Type: Spontaneous
  Country: US (occurrence: US)
  Receive Date: 20151013
  Receipt Date: 20151013
  Transmission Date: 20160304
  Serious: No
  Sender: FDA-Public Use
  Company Number: US-JNJFOC-20150415006

PATIENT
  Age: 77 Year
  Sex: Female
  Weight: 72.12 kg

DRUGS (2)
  1. OTHER THERAPEUTIC PRODUCT UNSPECIFIED [Concomitant]
     Active Substance: UNSPECIFIED INGREDIENT
     Indication: PRODUCT USED FOR UNKNOWN INDICATION
     Route: 065
  2. TYLENOL EXTRA STRENGTH [Suspect]
     Active Substance: ACETAMINOPHEN
     Indication: ARTHRITIS
     Dosage: 1 - 2 TIMES DAILY (1 TABLET IN THE MORNING, AND SOMETIMES 1 TABLET IN THE AFTERNOON, AS NEEDED)
     Route: 048

REACTIONS (1)
  - Incorrect dose administered [Unknown]
